FAERS Safety Report 5241983-X (Version None)
Quarter: 2007Q1

REPORT INFORMATION
  Report Type: 
  Country: None (occurrence: None)
  Receive Date: 20070220
  Receipt Date: 20070208
  Transmission Date: 20070707
  Serious: Yes (Other)
  Sender: FDA-Public Use
  Company Number: US-PFIZER INC-2007011015

PATIENT
  Sex: Male
  Weight: 136.1 kg

DRUGS (5)
  1. LYRICA [Suspect]
     Indication: NERVE INJURY
  2. ALL OTHER THERAPEUTIC PRODUCTS [Concomitant]
  3. TOPROL-XL [Concomitant]
  4. ALLOPURINOL SODIUM [Concomitant]
  5. FUROSEMIDE [Concomitant]

REACTIONS (5)
  - ATRIAL FIBRILLATION [None]
  - DIZZINESS [None]
  - DRUG INEFFECTIVE [None]
  - SOMNOLENCE [None]
  - VISION BLURRED [None]
